FAERS Safety Report 19305870 (Version 1)
Quarter: 2021Q2

REPORT INFORMATION
  Report Type: Report from Study
  Country: US (occurrence: US)
  Receive Date: 20210525
  Receipt Date: 20210525
  Transmission Date: 20210717
  Serious: Yes (Other)
  Sender: FDA-Public Use
  Company Number: US-OTSUKA-2021_016584

PATIENT
  Sex: Female

DRUGS (2)
  1. ASTX727 [Suspect]
     Active Substance: CEDAZURIDINE\DECITABINE
     Indication: MYELODYSPLASTIC SYNDROME
     Dosage: 35/100MG (35 MG DECITABINE AND 100 MG CEDAZURIDINE) ON DAYS 1?5 OF EACH 28 DAY CYCLE
     Route: 048
     Dates: start: 20210428
  2. ASTX727 [Suspect]
     Active Substance: CEDAZURIDINE\DECITABINE
     Indication: BREAST CANCER FEMALE

REACTIONS (2)
  - Blood count abnormal [Unknown]
  - Fatigue [Unknown]
